FAERS Safety Report 5477742-2 (Version None)
Quarter: 2007Q4

REPORT INFORMATION
  Report Type: 
  Country: None (occurrence: None)
  Receive Date: 20071002
  Receipt Date: 20071002
  Transmission Date: 20080405
  Serious: Yes (Hospitalization)
  Sender: FDA-Public Use
  Company Number: None

PATIENT
  Age: 86 Year
  Sex: Male
  Weight: 69.1 kg

DRUGS (1)
  1. AMIODARONE HCL [Suspect]
     Indication: ATRIAL FIBRILLATION
     Dosage: 200MG DAILY PO
     Route: 048

REACTIONS (4)
  - CARDIAC FAILURE [None]
  - CARDIAC STRESS TEST ABNORMAL [None]
  - DRUG TOXICITY [None]
  - INTERSTITIAL LUNG DISEASE [None]
